FAERS Safety Report 6340677-7 (Version None)
Quarter: 2009Q3

REPORT INFORMATION
  Report Type: 
  Country: None (occurrence: None)
  Receive Date: 20090904
  Receipt Date: 20090826
  Transmission Date: 20100115
  Serious: Yes (Other)
  Sender: FDA-Public Use
  Company Number: US-JNJFOC-20090808669

PATIENT
  Sex: Male
  Weight: 123.38 kg

DRUGS (11)
  1. REMICADE [Suspect]
     Route: 042
  2. REMICADE [Suspect]
     Indication: UVEITIS
     Route: 042
  3. PREDNISONE TAB [Concomitant]
     Indication: UVEITIS
     Route: 048
  4. COSOPT EYE DROPS [Concomitant]
  5. ALPHAGAN P [Concomitant]
  6. METHOTREXATE [Concomitant]
  7. FOLIC ACID [Concomitant]
     Indication: UVEITIS
  8. ZANTAC [Concomitant]
  9. OMNIPRED [Concomitant]
  10. VIGAMOX [Concomitant]
  11. SCOPOLAMINE [Concomitant]

REACTIONS (1)
  - ANGLE CLOSURE GLAUCOMA [None]
